FAERS Safety Report 17526203 (Version 1)
Quarter: 2020Q1

REPORT INFORMATION
  Report Type: Spontaneous
  Country: US (occurrence: US)
  Receive Date: 20200303
  Receipt Date: 20200303
  Transmission Date: 20200409
  Serious: No
  Sender: FDA-Public Use
  Company Number: None

PATIENT
  Age: 58 Year
  Sex: Female

DRUGS (1)
  1. NUCALA [Suspect]
     Active Substance: MEPOLIZUMAB
     Indication: ASTHMA
     Route: 058
     Dates: start: 201911

REACTIONS (4)
  - Pruritus [None]
  - Vision blurred [None]
  - Cataract [None]
  - Dry skin [None]

NARRATIVE: CASE EVENT DATE: 202001
